FAERS Safety Report 7681797-4 (Version None)
Quarter: 2011Q3

REPORT INFORMATION
  Report Type: 
  Country: None (occurrence: None)
  Receive Date: 20110812
  Receipt Date: 20110803
  Transmission Date: 20111222
  Serious: Yes (Hospitalization, Disabling, Other)
  Sender: FDA-Public Use
  Company Number: BR-ASTRAZENECA-2011SE43390

PATIENT
  Age: 61 Year
  Sex: Female
  Weight: 72 kg

DRUGS (10)
  1. SEROQUEL [Suspect]
     Indication: DEPRESSION
     Route: 048
     Dates: start: 20110601
  2. NEXIUM [Suspect]
     Indication: GASTRITIS
     Route: 048
     Dates: end: 20100101
  3. CLONAZEPAM [Concomitant]
     Dates: start: 20101008
  4. ATACAND [Suspect]
     Indication: HYPERTENSION
     Route: 048
     Dates: start: 20060101
  5. OMEPRAZOLE [Suspect]
     Route: 048
  6. NEXIUM [Suspect]
     Route: 048
     Dates: start: 20101008
  7. PRISTIQ [Concomitant]
     Dates: start: 20101008
  8. CLOPIDOGREL [Concomitant]
     Dates: start: 20101008
  9. SEROQUEL [Suspect]
     Indication: ANXIETY
     Route: 048
     Dates: start: 20110601
  10. VYTORIN [Concomitant]
     Dates: start: 20101008

REACTIONS (9)
  - CEREBRAL ISCHAEMIA [None]
  - PARAESTHESIA [None]
  - ANXIETY [None]
  - DEPRESSION [None]
  - INSOMNIA [None]
  - HYPERCHOLESTEROLAEMIA [None]
  - SPEECH DISORDER [None]
  - OFF LABEL USE [None]
  - MONOPARESIS [None]
